FAERS Safety Report 26206889 (Version 1)
Quarter: 2025Q4

REPORT INFORMATION
  Report Type: Spontaneous
  Country: EU (occurrence: EU)
  Receive Date: 20251229
  Receipt Date: 20251229
  Transmission Date: 20260117
  Serious: Yes (Hospitalization, Other)
  Sender: BRISTOL-MYERS SQUIBB COMPANY
  Company Number: EU-BRISTOL-MYERS SQUIBB COMPANY-2025-170581

PATIENT
  Age: 71 Year
  Sex: Female

DRUGS (5)
  1. CAMZYOS [Suspect]
     Active Substance: MAVACAMTEN
     Indication: Cardiomyopathy
     Dates: start: 20250426, end: 202506
  2. CAMZYOS [Suspect]
     Active Substance: MAVACAMTEN
  3. CAMZYOS [Suspect]
     Active Substance: MAVACAMTEN
  4. LETROZOLE [Concomitant]
     Active Substance: LETROZOLE
     Indication: Breast cancer
  5. VERZENIO [Concomitant]
     Active Substance: ABEMACICLIB
     Indication: Breast cancer

REACTIONS (3)
  - Hyperthyroidism [Unknown]
  - Stress cardiomyopathy [Unknown]
  - Left ventricular outflow tract gradient increased [Unknown]

NARRATIVE: CASE EVENT DATE: 20251212
